FAERS Safety Report 9487152 (Version 1)
Quarter: 2013Q3

REPORT INFORMATION
  Report Type: Spontaneous
  Country: DE (occurrence: None)
  Receive Date: 20130823
  Receipt Date: 20130823
  Transmission Date: 20140515
  Serious: Yes (Life-Threatening)
  Sender: FDA-Public Use
  Company Number: DE-012648

PATIENT
  Age: 30 Year
  Sex: Female
  Weight: 62 kg

DRUGS (3)
  1. CLOMIFEN [Suspect]
     Indication: INFERTILITY FEMALE
     Route: 048
     Dates: start: 201203, end: 201210
  2. CHORIONIC GONADOTROPIN [Suspect]
     Indication: INFERTILITY FEMALE
     Route: 048
     Dates: start: 201203, end: 201210
  3. ESTRADIOL [Suspect]
     Indication: INFERTILITY FEMALE
     Route: 048
     Dates: start: 201203, end: 201210

REACTIONS (9)
  - Lymphadenopathy [None]
  - Subcutaneous abscess [None]
  - Pseudolymphoma [None]
  - Lymphadenitis [None]
  - Inflammation [None]
  - Yersinia test positive [None]
  - Chlamydia test positive [None]
  - Anaemia [None]
  - Infectious mononucleosis [None]
